FAERS Safety Report 22312826 (Version 1)
Quarter: 2023Q2

REPORT INFORMATION
  Report Type: Report from Study
  Country: IT (occurrence: IT)
  Receive Date: 20230512
  Receipt Date: 20230512
  Transmission Date: 20230721
  Serious: Yes (Other)
  Sender: FDA-Public Use
  Company Number: None

PATIENT
  Age: 59 Year
  Sex: Female
  Weight: 68 kg

DRUGS (6)
  1. OXALIPLATIN [Suspect]
     Active Substance: OXALIPLATIN
     Indication: Pancreatic carcinoma
     Dosage: OXALIPLATINO
  2. FLUOROURACIL [Suspect]
     Active Substance: FLUOROURACIL
     Indication: Pancreatic carcinoma
     Dates: start: 20221221
  3. IRINOTECAN [Suspect]
     Active Substance: IRINOTECAN
     Indication: Pancreatic carcinoma
     Dates: start: 20221221
  4. POTASSIUM CHLORIDE [Concomitant]
     Active Substance: POTASSIUM CHLORIDE
     Indication: Product used for unknown indication
     Dosage: 4 DOSAGE FORMS DAILY;  600MG; 4 CP/DAY (2 CP AFTER LUNCH, 2 CP AFTER DINNER).
  5. CREON [Concomitant]
     Active Substance: PANCRELIPASE AMYLASE\PANCRELIPASE LIPASE\PANCRELIPASE PROTEASE
     Indication: Product used for unknown indication
     Dosage: 5 DOSAGE FORMS DAILY; 1000 IU; 5CP/DAY (1 CP AT BREAKFAST, 2 CP AT LUNCH, 2 CP AT DINNER).
  6. PANTOPRAZOLE [Concomitant]
     Active Substance: PANTOPRAZOLE
     Indication: Product used for unknown indication
     Dosage: 40 MILLIGRAM DAILY;

REACTIONS (4)
  - Neurotoxicity [Unknown]
  - Asthenia [Unknown]
  - Dysgeusia [Unknown]
  - Alopecia [Unknown]

NARRATIVE: CASE EVENT DATE: 20230301
